FAERS Safety Report 6727127-3 (Version None)
Quarter: 2010Q2

REPORT INFORMATION
  Report Type: 
  Country: None (occurrence: None)
  Receive Date: 20100517
  Receipt Date: 20100427
  Transmission Date: 20101027
  Serious: Yes (Hospitalization)
  Sender: FDA-Public Use
  Company Number: FR-BAYER-201024357GPV

PATIENT
  Age: 30 Year
  Sex: Female

DRUGS (4)
  1. BETAFERON [Suspect]
     Indication: MULTIPLE SCLEROSIS
     Route: 058
     Dates: start: 20060101, end: 20090701
  2. REBIF [Suspect]
     Indication: MULTIPLE SCLEROSIS
     Route: 058
     Dates: start: 20090801
  3. PLAQUENIL [Concomitant]
     Route: 048
  4. CORTANCYL [Concomitant]
     Dosage: TOTAL DAILY DOSE: 4 MG
     Route: 048

REACTIONS (9)
  - ALOPECIA [None]
  - ARTHRALGIA [None]
  - BUTTERFLY RASH [None]
  - INJECTION SITE RASH [None]
  - LUPUS-LIKE SYNDROME [None]
  - OEDEMA PERIPHERAL [None]
  - OROPHARYNGEAL PAIN [None]
  - PROTEINURIA [None]
  - SICCA SYNDROME [None]
